FAERS Safety Report 5885793-9 (Version None)
Quarter: 2008Q3

REPORT INFORMATION
  Report Type: 
  Country: None (occurrence: None)
  Receive Date: 20080917
  Receipt Date: 20080912
  Transmission Date: 20090109
  Serious: Yes (Disabling)
  Sender: FDA-Public Use
  Company Number: AU-WYE-G02150408

PATIENT
  Sex: Female

DRUGS (7)
  1. EFFEXOR XR [Suspect]
     Indication: FIBROMYALGIA
     Route: 048
  2. EFFEXOR XR [Suspect]
     Route: 048
  3. EFFEXOR XR [Suspect]
     Route: 048
  4. EFFEXOR XR [Suspect]
     Route: 048
  5. EFFEXOR XR [Suspect]
     Route: 048
  6. EFFEXOR XR [Suspect]
     Route: 048
  7. EFFEXOR XR [Suspect]
     Route: 048
     Dates: end: 20080906

REACTIONS (8)
  - ANXIETY [None]
  - CONFUSIONAL STATE [None]
  - CONSTIPATION [None]
  - DISTURBANCE IN ATTENTION [None]
  - DIZZINESS [None]
  - DRUG WITHDRAWAL SYNDROME [None]
  - FATIGUE [None]
  - NAUSEA [None]
